FAERS Safety Report 4350956-0 (Version None)
Quarter: 2004Q2

REPORT INFORMATION
  Report Type: 
  Country: None (occurrence: None)
  Receive Date: 20040427
  Receipt Date: 20040213
  Transmission Date: 20050107
  Serious: No
  Sender: FDA-Public Use
  Company Number: A01200401386

PATIENT
  Age: 58 Year
  Sex: Male

DRUGS (1)
  1. ELOXATIN [Suspect]
     Indication: COLON CANCER
     Dosage: 100 MG INTRAVENOUS NOS
     Route: 042
     Dates: start: 20031202, end: 20031204

REACTIONS (8)
  - ANGIONEUROTIC OEDEMA [None]
  - COUGH [None]
  - DYSAESTHESIA PHARYNX [None]
  - EYE REDNESS [None]
  - FLUSHING [None]
  - LARYNGEAL OEDEMA [None]
  - PHARYNGEAL OEDEMA [None]
  - URTICARIA GENERALISED [None]
